FAERS Safety Report 6943335-0 (Version None)
Quarter: 2010Q3

REPORT INFORMATION
  Report Type: 
  Country: None (occurrence: None)
  Receive Date: 20100823
  Receipt Date: 20100408
  Transmission Date: 20110219
  Serious: Yes (Life-Threatening, Hospitalization)
  Sender: FDA-Public Use
  Company Number: WAES 1004CAN00001

PATIENT
  Age: 39 Year
  Sex: Male

DRUGS (12)
  1. TAB RALTEGRAVIR POTASSIUM UNK [Suspect]
     Indication: HIV INFECTION
     Dosage: 600 MG/BID/PO ; 600 MG/BID/PO ; 400 MG/BID/PO
     Route: 048
     Dates: start: 20050418, end: 20050427
  2. TAB RALTEGRAVIR POTASSIUM UNK [Suspect]
     Indication: HIV INFECTION
     Dosage: 600 MG/BID/PO ; 600 MG/BID/PO ; 400 MG/BID/PO
     Route: 048
     Dates: start: 20050614, end: 20060711
  3. TAB RALTEGRAVIR POTASSIUM UNK [Suspect]
     Indication: HIV INFECTION
     Dosage: 600 MG/BID/PO ; 600 MG/BID/PO ; 400 MG/BID/PO
     Route: 048
     Dates: start: 20060712, end: 20080730
  4. TAB TENOFOVIR UNK [Suspect]
     Indication: HIV INFECTION
     Dosage: 300 MG/DAILY/PO
     Route: 048
     Dates: start: 20050614, end: 20080730
  5. LAMIVUDINE [Suspect]
     Indication: HIV INFECTION
     Dosage: 300 MG/DAILY/PO
     Route: 048
     Dates: start: 20050614, end: 20080730
  6. TAB PLACEBO (UNSPECIFIED) UNK [Suspect]
     Indication: HIV INFECTION
     Dosage: DAILY/PO
     Route: 048
     Dates: start: 20050614, end: 20080730
  7. ANTIOXIDANTS (UNSPECIFIED) [Concomitant]
  8. CITALOPRAM HYDROBROMIDE [Concomitant]
  9. EFAVIRENZ [Concomitant]
  10. EMTRICITABINE (+) TENOFOVIR DISO [Concomitant]
  11. FLAXSEED [Concomitant]
  12. LACTASE [Concomitant]

REACTIONS (3)
  - COLORECTAL CANCER STAGE IV [None]
  - METASTASES TO LIVER [None]
  - METASTASES TO PERITONEUM [None]
